FAERS Safety Report 7854731-1 (Version None)
Quarter: 2011Q3

REPORT INFORMATION
  Report Type: 
  Country: None (occurrence: None)
  Receive Date: 20110916
  Receipt Date: 20110331
  Transmission Date: 20111222
  Serious: Yes (Hospitalization)
  Sender: FDA-Public Use
  Company Number: 2011-00360

PATIENT
  Age: 58 Year
  Sex: Male
  Weight: 99.7913 kg

DRUGS (3)
  1. MELOXICAM [Suspect]
     Indication: MYALGIA
     Dosage: (7.5 MG),PER ORAL
     Route: 048
     Dates: start: 20101001, end: 20110310
  2. VITAMIN D [Concomitant]
  3. ATIVAN [Concomitant]

REACTIONS (2)
  - UPPER GASTROINTESTINAL HAEMORRHAGE [None]
  - INTESTINAL ULCER [None]
